FAERS Safety Report 21299128 (Version 1)
Quarter: 2022Q3

REPORT INFORMATION
  Report Type: Spontaneous
  Country: US (occurrence: US)
  Receive Date: 20220906
  Receipt Date: 20220906
  Transmission Date: 20221026
  Serious: No
  Sender: FDA-Public Use
  Company Number: US-PFIZER INC-202201118235

PATIENT
  Age: 67 Year
  Sex: Female

DRUGS (12)
  1. IBRANCE [Suspect]
     Active Substance: PALBOCICLIB
     Dosage: 125 MG
  2. IBRANCE [Suspect]
     Active Substance: PALBOCICLIB
     Dosage: 100 MG, CYCLIC, TAKE 1 TABLET DAILY FOR 21 DAYS, THEN TAKE 7 DAYS OFF
  3. AMLODIPINE BESYLATE [Concomitant]
     Active Substance: AMLODIPINE BESYLATE
     Dosage: 10 MG
  4. ASPIRIN [Concomitant]
     Active Substance: ASPIRIN
     Dosage: 325 MG
  5. FLUTICASONE PROPIONATE [Concomitant]
     Active Substance: FLUTICASONE PROPIONATE
     Dosage: 50 UG
  6. LETROZOLE [Concomitant]
     Active Substance: LETROZOLE
     Dosage: 2.5 MG
  7. LISINOPRIL [Concomitant]
     Active Substance: LISINOPRIL
     Dosage: 10 MG
  8. LORAZEPAM [Concomitant]
     Active Substance: LORAZEPAM
     Dosage: 1 MG
  9. MIRTAZAPINE [Concomitant]
     Active Substance: MIRTAZAPINE
     Dosage: 45 MG
  10. ROSUVASTATIN CALCIUM [Concomitant]
     Active Substance: ROSUVASTATIN CALCIUM
     Dosage: 20 MG
  11. HERBALS\TURMERIC [Concomitant]
     Active Substance: HERBALS\TURMERIC
     Dosage: UNK [450MG-5]
  12. ZOLEDRONIC ACID [Concomitant]
     Active Substance: ZOLEDRONIC ACID
     Dosage: UNK [4 MG/10]

REACTIONS (3)
  - Sleep disorder [Recovering/Resolving]
  - Decreased appetite [Recovering/Resolving]
  - White blood cell count decreased [Recovering/Resolving]
